FAERS Safety Report 10221752 (Version 2)
Quarter: 2014Q2

REPORT INFORMATION
  Report Type: Spontaneous
  Country: BR (occurrence: BR)
  Receive Date: 20140606
  Receipt Date: 20140606
  Transmission Date: 20141212
  Serious: No
  Sender: FDA-Public Use
  Company Number: BR-BIOMARINAP-BR-2013-100572

PATIENT
  Sex: Male
  Weight: 22 kg

DRUGS (2)
  1. NAGLAZYME [Suspect]
     Indication: MUCOPOLYSACCHARIDOSIS VI
     Dosage: 25 MG, QW
     Route: 041
     Dates: start: 20110214
  2. HIXIZINE [Concomitant]
     Indication: PREMEDICATION
     Route: 048

REACTIONS (2)
  - Mitral valve disease [Not Recovered/Not Resolved]
  - Mitral valve incompetence [Not Recovered/Not Resolved]
